FAERS Safety Report 13237843 (Version 1)
Quarter: 2017Q1

REPORT INFORMATION
  Report Type: Spontaneous
  Country: FR (occurrence: FR)
  Receive Date: 20170216
  Receipt Date: 20170216
  Transmission Date: 20170428
  Serious: Yes (Death)
  Sender: FDA-Public Use
  Company Number: FR-ROCHE-1893204

PATIENT
  Age: 70 Year
  Sex: Male

DRUGS (15)
  1. LANZOR [Concomitant]
     Active Substance: LANSOPRAZOLE
     Route: 048
  2. LOXEN LP [Concomitant]
     Active Substance: NICARDIPINE
     Route: 048
  3. MECIR [Concomitant]
     Active Substance: TAMSULOSIN HYDROCHLORIDE
     Route: 048
  4. VIMPAT [Concomitant]
     Active Substance: LACOSAMIDE
     Route: 048
  5. TEGRETOL [Concomitant]
     Active Substance: CARBAMAZEPINE
     Dosage: 1.5DF IN THE MORNING AND 1DF IN THE EVENING
     Route: 048
  6. LOVENOX [Concomitant]
     Active Substance: ENOXAPARIN SODIUM
     Route: 058
  7. RIVOTRIL [Concomitant]
     Active Substance: CLONAZEPAM
     Dosage: IN THE EVENING
     Route: 048
  8. ZOPHREN [Concomitant]
     Active Substance: ONDANSETRON
     Indication: NAUSEA
     Route: 048
  9. APROVEL [Concomitant]
     Active Substance: IRBESARTAN
     Route: 048
  10. SOLUPRED (FRANCE) [Concomitant]
     Active Substance: PREDNISOLONE
     Dosage: IN THE MORNING
     Route: 048
  11. NOVOMIX [Concomitant]
     Active Substance: INSULIN ASPART
     Dosage: IN THE MORNING AND EVENING
     Route: 058
  12. NOVOMIX [Concomitant]
     Active Substance: INSULIN ASPART
     Dosage: AT MIDDAY
     Route: 058
  13. AVASTIN [Suspect]
     Active Substance: BEVACIZUMAB
     Indication: GLIOBLASTOMA
     Dosage: 25MG/ML
     Route: 042
     Dates: start: 201509
  14. HYPERIUM [Concomitant]
     Active Substance: RILMENIDINE PHOSPHATE
     Route: 048
  15. DOLIPRANE [Concomitant]
     Active Substance: ACETAMINOPHEN
     Indication: PAIN
     Dosage: 2 UNITS
     Route: 048

REACTIONS (3)
  - Condition aggravated [Fatal]
  - Lung infection [Fatal]
  - Nephrotic syndrome [Fatal]

NARRATIVE: CASE EVENT DATE: 201509
